FAERS Safety Report 10203471 (Version 2)
Quarter: 2014Q2

REPORT INFORMATION
  Report Type: Report from Study
  Country: JP (occurrence: JP)
  Receive Date: 20140529
  Receipt Date: 20140529
  Transmission Date: 20141212
  Serious: Yes (Other)
  Sender: FDA-Public Use
  Company Number: JP-AMGEN-JPNCT2014028703

PATIENT
  Sex: Female
  Weight: 37 kg

DRUGS (8)
  1. DENOSUMAB [Suspect]
     Indication: METASTASES TO BONE
     Dosage: 120 MG, UNK
     Route: 058
     Dates: start: 20130405
  2. ALFAROL [Concomitant]
     Dosage: 1 MUG, QD
     Route: 048
     Dates: start: 20130325
  3. CALCIUM LACTATE [Concomitant]
     Dosage: 1 G, QD
     Route: 048
     Dates: start: 20130325
  4. PACLITAXEL [Concomitant]
     Dosage: 90 MG, 3DOSED,1REST
     Route: 065
     Dates: start: 20130816
  5. PACLITAXEL [Concomitant]
     Dosage: 90 MG, 3DOSED,1REST
     Route: 042
  6. AVASTIN                            /00848101/ [Concomitant]
     Dosage: 370 MG, Q2WK
     Route: 042
     Dates: start: 20130816
  7. PROTECADIN [Concomitant]
     Dosage: 20 MG, QD
     Route: 048
     Dates: start: 20130816
  8. LOXONIN [Concomitant]
     Dosage: 180 MG, QD
     Route: 048
     Dates: start: 20131224

REACTIONS (1)
  - Osteonecrosis of jaw [Not Recovered/Not Resolved]
